FAERS Safety Report 8518551-7 (Version None)
Quarter: 2012Q3

REPORT INFORMATION
  Report Type: 
  Country: None (occurrence: None)
  Receive Date: 20120718
  Receipt Date: 20120515
  Transmission Date: 20120928
  Serious: Yes (Other)
  Sender: FDA-Public Use
  Company Number: US-BRISTOL-MYERS SQUIBB COMPANY-16594632

PATIENT
  Sex: Female

DRUGS (3)
  1. WARFARIN SODIUM [Suspect]
  2. XARELTO [Suspect]
     Dosage: TAB
     Route: 048
     Dates: start: 20120327
  3. VITAMIN K TAB [Concomitant]

REACTIONS (2)
  - HYPERSENSITIVITY [None]
  - INTERNATIONAL NORMALISED RATIO INCREASED [None]
